FAERS Safety Report 20477509 (Version 1)
Quarter: 2022Q1

REPORT INFORMATION
  Report Type: Spontaneous
  Country: None (occurrence: US)
  Receive Date: 20220216
  Receipt Date: 20220216
  Transmission Date: 20220423
  Serious: Yes (Other)
  Sender: FDA-Public Use
  Company Number: US-MLV Pharma LLC-2125923

PATIENT
  Age: 70 Year
  Sex: Female

DRUGS (3)
  1. ETODOLAC [Suspect]
     Active Substance: ETODOLAC
  2. AMITRIPTYLINE HYDROCHLORIDE [Suspect]
     Active Substance: AMITRIPTYLINE HYDROCHLORIDE
  3. GABAPENTIN [Suspect]
     Active Substance: GABAPENTIN

REACTIONS (5)
  - Cystitis interstitial [Recovered/Resolved]
  - Cystitis interstitial [Recovered/Resolved]
  - Headache [Unknown]
  - Vision blurred [Unknown]
  - Cognitive disorder [Unknown]
